FAERS Safety Report 24673740 (Version 1)
Quarter: 2024Q4

REPORT INFORMATION
  Report Type: Spontaneous
  Country: IN (occurrence: IN)
  Receive Date: 20241128
  Receipt Date: 20241128
  Transmission Date: 20250115
  Serious: Yes (Other)
  Sender: ARGENX BVBA
  Company Number: IN-ARGENX-2024-ARGX-IN010545

PATIENT

DRUGS (1)
  1. VYVGART [Suspect]
     Active Substance: EFGARTIGIMOD ALFA-FCAB
     Indication: Myasthenia gravis
     Dosage: UNK
     Route: 042

REACTIONS (5)
  - Autonomic neuropathy [Unknown]
  - Myasthenia gravis [Unknown]
  - Ill-defined disorder [Unknown]
  - Nausea [Unknown]
  - Therapeutic product effect decreased [Unknown]
